FAERS Safety Report 7337228-7 (Version None)
Quarter: 2011Q1

REPORT INFORMATION
  Report Type: 
  Country: None (occurrence: None)
  Receive Date: 20110308
  Receipt Date: 20110302
  Transmission Date: 20110831
  Serious: Yes (Other)
  Sender: FDA-Public Use
  Company Number: DE-ABBOTT-11P-062-0708889-00

PATIENT
  Age: 55 Year
  Sex: Female
  Weight: 91 kg

DRUGS (8)
  1. PREDNISOLONE [Concomitant]
     Indication: RHEUMATOID ARTHRITIS
     Dosage: 10 MG DAILY
  2. BONIVA [Concomitant]
     Indication: OSTEOPOROSIS
     Dosage: 3MG PER 3 MONTHS
  3. VITAMIN D [Concomitant]
     Indication: OSTEOPOROSIS
  4. SULFASALAZINE [Concomitant]
     Indication: RHEUMATOID ARTHRITIS
     Dosage: 3000 MG DAILY
  5. HUMIRA [Suspect]
     Route: 058
     Dates: start: 20110201
  6. ANALGETIC DRUG [Concomitant]
     Indication: RHEUMATOID ARTHRITIS
  7. HUMIRA [Suspect]
     Indication: RHEUMATOID ARTHRITIS
     Route: 058
     Dates: start: 20101028, end: 20110121
  8. BISOPROLOL FUMARATE [Concomitant]
     Indication: HYPERTENSION
     Dosage: 5 MG DAILY

REACTIONS (1)
  - PARANASAL CYST [None]
